FAERS Safety Report 20124339 (Version 1)
Quarter: 2021Q4

REPORT INFORMATION
  Report Type: Spontaneous
  Country: US (occurrence: US)
  Receive Date: 20211129
  Receipt Date: 20211129
  Transmission Date: 20220303
  Serious: Yes (Other)
  Sender: FDA-Public Use
  Company Number: US-BRISTOL-MYERS SQUIBB COMPANY-BMS-2021-127141

PATIENT
  Age: 74 Year
  Sex: Female

DRUGS (4)
  1. ORENCIA [Suspect]
     Active Substance: ABATACEPT
     Indication: Rheumatoid arthritis
     Dosage: 125 MILLIGRAM, QWK
     Route: 058
     Dates: start: 201607
  2. ORENCIA [Suspect]
     Active Substance: ABATACEPT
     Indication: Rheumatoid arthritis
     Dosage: 125 MILLIGRAM, QWK
     Route: 058
     Dates: start: 201607
  3. ORENCIA [Suspect]
     Active Substance: ABATACEPT
     Indication: Upper respiratory tract infection
  4. ORENCIA [Suspect]
     Active Substance: ABATACEPT
     Indication: Upper respiratory tract infection

REACTIONS (2)
  - Diverticulitis [Unknown]
  - Onychomycosis [Not Recovered/Not Resolved]
